FAERS Safety Report 19722509 (Version 1)
Quarter: 2021Q3

REPORT INFORMATION
  Report Type: Report from Study
  Country: IT (occurrence: IT)
  Receive Date: 20210819
  Receipt Date: 20210819
  Transmission Date: 20211014
  Serious: Yes (Other)
  Sender: FDA-Public Use
  Company Number: IT-MYLANLABS-2021M1052217

PATIENT
  Age: 46 Year
  Sex: Male

DRUGS (6)
  1. NEURABEN [Concomitant]
     Active Substance: CYANOCOBALAMIN\PYRIDOXINE\THIAMINE
     Dosage: UNK
  2. CLEXANE T [Concomitant]
     Active Substance: ENOXAPARIN SODIUM
     Dosage: UNK
  3. DEPAKIN CHRONO                     /00228502/ [Suspect]
     Active Substance: VALPROATE SODIUM
     Indication: GENERALISED TONIC-CLONIC SEIZURE
     Dosage: 2 DOSAGE FORM, QD
     Route: 048
     Dates: start: 20181222
  4. ALCOVER [Concomitant]
     Active Substance: SODIUM OXYBATE
     Dosage: UNK
  5. METADONE CLORIDRATO AFOM [Concomitant]
     Active Substance: METHADONE HYDROCHLORIDE
     Dosage: UNK
  6. QUETIAPINE. [Suspect]
     Active Substance: QUETIAPINE
     Indication: GENERALISED TONIC-CLONIC SEIZURE
     Dosage: 1 DOSAGE FORM, QD
     Route: 048
     Dates: start: 20181222

REACTIONS (5)
  - Epilepsy [Unknown]
  - Vomiting [Unknown]
  - Head injury [Unknown]
  - Alcohol abuse [Unknown]
  - Malaise [Unknown]

NARRATIVE: CASE EVENT DATE: 20210118
